FAERS Safety Report 5557632-7 (Version None)
Quarter: 2007Q4

REPORT INFORMATION
  Report Type: 
  Country: None (occurrence: None)
  Receive Date: 20071214
  Receipt Date: 20071211
  Transmission Date: 20080405
  Serious: Yes (Other)
  Sender: FDA-Public Use
  Company Number: B0499222A

PATIENT
  Age: 78 Year
  Sex: Male
  Weight: 70 kg

DRUGS (5)
  1. AMOXICILLIN + CLAVULANATE POTASSIUM [Suspect]
     Indication: BRONCHITIS
     Dates: start: 20070221, end: 20070228
  2. CO-AMILOZIDE [Concomitant]
     Indication: HYPOTENSION
     Route: 048
     Dates: start: 20010101
  3. FELODIPINE [Concomitant]
     Route: 048
     Dates: start: 20020401
  4. TEMAZEPAM [Concomitant]
     Indication: INSOMNIA
     Route: 048
     Dates: start: 20020101
  5. OMEPRAZOLE [Concomitant]
     Route: 048
     Dates: start: 20031101

REACTIONS (6)
  - DYSPEPSIA [None]
  - HEPATOMEGALY [None]
  - JAUNDICE [None]
  - MALAISE [None]
  - NAUSEA [None]
  - WEIGHT DECREASED [None]
